FAERS Safety Report 5171641-1 (Version None)
Quarter: 2006Q4

REPORT INFORMATION
  Report Type: 
  Country: None (occurrence: None)
  Receive Date: 20061213
  Receipt Date: 20061206
  Transmission Date: 20070319
  Serious: Yes (Hospitalization, Other)
  Sender: FDA-Public Use
  Company Number: FR-BRISTOL-MYERS SQUIBB COMPANY-13605241

PATIENT
  Age: 78 Year
  Sex: Male

DRUGS (6)
  1. COUMADIN [Suspect]
     Route: 048
     Dates: end: 20060526
  2. VOLTAREN [Suspect]
     Dates: end: 20060523
  3. CORTANCYL [Concomitant]
     Dates: end: 20060517
  4. FOSAMAX [Concomitant]
     Route: 048
  5. NEXIUM [Concomitant]
     Route: 048
  6. DOXAZOSIN MESYLATE [Concomitant]
     Route: 048

REACTIONS (1)
  - MICROCYTIC ANAEMIA [None]
